FAERS Safety Report 25714293 (Version 1)
Quarter: 2025Q3

REPORT INFORMATION
  Report Type: Spontaneous
  Country: GB (occurrence: GB)
  Receive Date: 20250822
  Receipt Date: 20250822
  Transmission Date: 20251020
  Serious: Yes (Other)
  Sender: AUROBINDO
  Company Number: GB-MHRA-WEBRADR-202507310153432820-QDSTN

PATIENT
  Age: 25 Year
  Sex: Female

DRUGS (2)
  1. METRONIDAZOLE [Suspect]
     Active Substance: METRONIDAZOLE
     Indication: Pelvic inflammatory disease
     Route: 065
     Dates: start: 20250721
  2. DOXYCYCLINE [Suspect]
     Active Substance: DOXYCYCLINE
     Indication: Pelvic inflammatory disease
     Route: 048
     Dates: start: 20250721

REACTIONS (11)
  - Chromaturia [Not Recovered/Not Resolved]
  - Gastrooesophageal reflux disease [Unknown]
  - Menstruation delayed [Recovered/Resolved]
  - Abdominal pain upper [Not Recovered/Not Resolved]
  - Vomiting [Recovered/Resolved]
  - Oral candidiasis [Not Recovered/Not Resolved]
  - Diarrhoea [Not Recovered/Not Resolved]
  - Fatigue [Not Recovered/Not Resolved]
  - Product use complaint [Unknown]
  - Stress [Unknown]
  - Menstrual disorder [Unknown]

NARRATIVE: CASE EVENT DATE: 20250722
